FAERS Safety Report 12884994 (Version 6)
Quarter: 2017Q2

REPORT INFORMATION
  Report Type: Report from Study
  Country: US (occurrence: US)
  Receive Date: 20161026
  Receipt Date: 20170512
  Transmission Date: 20170830
  Serious: Yes (Other)
  Sender: FDA-Public Use
  Company Number: US-GILEAD-2016-0212337

PATIENT
  Age: 61 Year
  Sex: Female

DRUGS (9)
  1. AMLODIPINE [Concomitant]
     Active Substance: AMLODIPINE BESYLATE
  2. ORENITRAM [Suspect]
     Active Substance: TREPROSTINIL
     Dosage: 2.75 MG, TID
     Route: 065
  3. TYVASO [Suspect]
     Active Substance: TREPROSTINIL
     Dosage: 9 DF (9 BREATHS), QID
     Route: 055
  4. AMBRISENTAN [Suspect]
     Active Substance: AMBRISENTAN
     Indication: PRODUCT USED FOR UNKNOWN INDICATION
     Dosage: 10 MG, QD
     Route: 065
     Dates: start: 20140603
  5. TYVASO [Suspect]
     Active Substance: TREPROSTINIL
     Indication: PRODUCT USED FOR UNKNOWN INDICATION
     Dosage: 9 DF (9 BREATHS)
     Route: 055
  6. ORENITRAM [Suspect]
     Active Substance: TREPROSTINIL
     Indication: PRODUCT USED FOR UNKNOWN INDICATION
     Dosage: UNK
     Route: 065
  7. TYVASO [Suspect]
     Active Substance: TREPROSTINIL
     Dosage: 7 DF (7 BREATHS), UNK
     Route: 055
  8. WARFARIN [Concomitant]
     Active Substance: WARFARIN
  9. XARELTO [Concomitant]
     Active Substance: RIVAROXABAN

REACTIONS (14)
  - Weight increased [Unknown]
  - Chest discomfort [Not Recovered/Not Resolved]
  - Productive cough [Not Recovered/Not Resolved]
  - Diarrhoea [Not Recovered/Not Resolved]
  - Headache [Not Recovered/Not Resolved]
  - Abdominal discomfort [Unknown]
  - Hot flush [Unknown]
  - Diverticulitis [Not Recovered/Not Resolved]
  - Dyspnoea [Unknown]
  - Lower respiratory tract congestion [Unknown]
  - Cough [Unknown]
  - Abdominal pain upper [Unknown]
  - Nausea [Not Recovered/Not Resolved]
  - Sinus disorder [Unknown]
